FAERS Safety Report 18941984 (Version 2)
Quarter: 2021Q1

REPORT INFORMATION
  Report Type: Spontaneous
  Country: ES (occurrence: ES)
  Receive Date: 20210225
  Receipt Date: 20210315
  Transmission Date: 20210420
  Serious: Yes (Other)
  Sender: FDA-Public Use
  Company Number: ES-009507513-2102ESP007463

PATIENT
  Age: 61 Year
  Sex: Male

DRUGS (7)
  1. PIPERACILLIN SODIUM (+) TAZOBACTAM [Concomitant]
     Active Substance: PIPERACILLIN SODIUM\TAZOBACTAM SODIUM
     Indication: PNEUMONIA PNEUMOCOCCAL
     Dosage: UNK
     Dates: start: 202007
  2. POSACONAZOLE [Suspect]
     Active Substance: POSACONAZOLE
     Indication: DISSEMINATED CRYPTOCOCCOSIS
     Dosage: 300MG DAILY
     Dates: start: 20200923
  3. FLUCONAZOLE. [Suspect]
     Active Substance: FLUCONAZOLE
     Indication: CRYPTOCOCCOSIS
     Dosage: BUT THEN AT 200 MG EVERY 12 HOURS
     Dates: start: 202007, end: 202007
  4. SULFAMETHOXAZOLE (+) TRIMETHOPRIM [Concomitant]
     Active Substance: SULFAMETHOXAZOLE\TRIMETHOPRIM
     Indication: PNEUMONIA PNEUMOCOCCAL
     Dosage: UNK
     Dates: start: 202007
  5. CANCIDAS [Suspect]
     Active Substance: CASPOFUNGIN ACETATE
     Indication: OESOPHAGEAL CANDIDIASIS
     Dosage: UNK
     Dates: start: 202007, end: 202007
  6. FLUCONAZOLE. [Suspect]
     Active Substance: FLUCONAZOLE
     Indication: OESOPHAGEAL CANDIDIASIS
     Dosage: INITIALLY AT LOW DOSES
     Dates: start: 202007, end: 202007
  7. FLUCONAZOLE. [Suspect]
     Active Substance: FLUCONAZOLE
     Dosage: UNK
     Dates: start: 20200811, end: 20200811

REACTIONS (16)
  - Mastoiditis [Unknown]
  - Adjustment disorder with depressed mood [Unknown]
  - Behaviour disorder [Unknown]
  - Product use in unapproved indication [Unknown]
  - Cerebral atrophy [Unknown]
  - Asthenia [Unknown]
  - Apathy [Unknown]
  - Cytomegalovirus test positive [Unknown]
  - Decreased interest [Unknown]
  - Product prescribing issue [Unknown]
  - Food refusal [Unknown]
  - Lymph node calcification [Unknown]
  - Antimicrobial susceptibility test resistant [Unknown]
  - Hypoxic-ischaemic encephalopathy [Unknown]
  - Disseminated cryptococcosis [Recovering/Resolving]
  - Tremor [Not Recovered/Not Resolved]

NARRATIVE: CASE EVENT DATE: 2020
